FAERS Safety Report 8761795 (Version 1)
Quarter: 2012Q4

REPORT INFORMATION
  Report Type: Spontaneous
  Country: US (occurrence: None)
  Receive Date: 20120830
  Receipt Date: 20120830
  Transmission Date: 20130627
  Serious: No
  Sender: FDA-Public Use
  Company Number: None

PATIENT
  Sex: Female

DRUGS (1)
  1. AMLODIPINE TAB 5MG CARACO [Suspect]
     Indication: PALPITATIONS
     Route: 048
     Dates: start: 20120715, end: 20120823

REACTIONS (4)
  - Headache [None]
  - Palpitations [None]
  - Product substitution issue [None]
  - Product quality issue [None]
